FAERS Safety Report 6176436-8 (Version None)
Quarter: 2009Q2

REPORT INFORMATION
  Report Type: 
  Country: None (occurrence: None)
  Receive Date: 20090501
  Receipt Date: 20080905
  Transmission Date: 20091009
  Serious: Yes (Life-Threatening, Hospitalization, Other)
  Sender: FDA-Public Use
  Company Number: ES-ALEXION-A200800213

PATIENT

DRUGS (4)
  1. SOLIRIS [Suspect]
     Indication: PAROXYSMAL NOCTURNAL HAEMOGLOBINURIA
     Dosage: UNK, SINGLE
     Route: 042
     Dates: start: 20071113, end: 20071113
  2. SOLIRIS [Suspect]
     Dosage: 1200 MG, SINGLE, Q14 DAYS
     Route: 042
     Dates: start: 20080616, end: 20080825
  3. ORAL ANTICOAGULANT [Concomitant]
     Route: 048
     Dates: start: 20040101
  4. CORTICOSTEROIDS [Concomitant]
     Indication: NEUTROPENIA
     Dosage: 1 MG/KG, QD, SHORT PULSE

REACTIONS (4)
  - ANAEMIA [None]
  - SEPTIC SHOCK [None]
  - SKIN INFECTION [None]
  - STAPHYLOCOCCAL SEPSIS [None]
